FAERS Safety Report 24876974 (Version 1)
Quarter: 2025Q1

REPORT INFORMATION
  Report Type: Spontaneous
  Country: FR (occurrence: FR)
  Receive Date: 20250123
  Receipt Date: 20250123
  Transmission Date: 20250409
  Serious: Yes (Other)
  Sender: AUROBINDO
  Company Number: FR-AUROBINDO-AUR-APL-2025-003779

PATIENT
  Sex: Female

DRUGS (1)
  1. BELINOSTAT [Suspect]
     Active Substance: BELINOSTAT
     Indication: Product used for unknown indication
     Route: 065

REACTIONS (1)
  - Febrile bone marrow aplasia [Unknown]
